FAERS Safety Report 5370189-9 (Version None)
Quarter: 2007Q2

REPORT INFORMATION
  Report Type: 
  Country: None (occurrence: None)
  Receive Date: 20070613
  Receipt Date: 20070501
  Transmission Date: 20071010
  Serious: No
  Sender: FDA-Public Use
  Company Number: IND-AE-07-SAN-022

PATIENT
  Age: 83 Year
  Sex: Female
  Weight: 79.3795 kg

DRUGS (5)
  1. SANCTURA [Suspect]
     Indication: INCONTINENCE
     Dosage: 20MG - QD - ORAL
     Route: 048
  2. LIPITOR [Concomitant]
  3. PREDNISONE [Concomitant]
  4. MICARDIS [Concomitant]
  5. LEVOTHROID [Concomitant]

REACTIONS (2)
  - RASH [None]
  - URTICARIA [None]
